FAERS Safety Report 5849315-0 (Version None)
Quarter: 2008Q3

REPORT INFORMATION
  Report Type: 
  Country: None (occurrence: None)
  Receive Date: 20080819
  Receipt Date: 20080721
  Transmission Date: 20090109
  Serious: No
  Sender: FDA-Public Use
  Company Number: US-BAYER-200821309NA

PATIENT
  Age: 36 Year
  Sex: Female
  Weight: 118 kg

DRUGS (1)
  1. MIRENA [Suspect]
     Indication: CONTRACEPTION
     Route: 015
     Dates: start: 20070701

REACTIONS (8)
  - ABDOMINAL DISTENSION [None]
  - AMENORRHOEA [None]
  - HEADACHE [None]
  - PROCEDURAL PAIN [None]
  - TINNITUS [None]
  - VAGINAL HAEMORRHAGE [None]
  - VISUAL IMPAIRMENT [None]
  - WEIGHT INCREASED [None]
